FAERS Safety Report 18299795 (Version 2)
Quarter: 2020Q4

REPORT INFORMATION
  Report Type: Spontaneous
  Country: GB (occurrence: GB)
  Receive Date: 20200922
  Receipt Date: 20201109
  Transmission Date: 20210113
  Serious: Yes (Other)
  Sender: FDA-Public Use
  Company Number: GB-BEH-2020122587

PATIENT
  Sex: Female
  Weight: 80 kg

DRUGS (1)
  1. RIASTAP [Suspect]
     Active Substance: FIBRINOGEN HUMAN
     Indication: DISSEMINATED INTRAVASCULAR COAGULATION
     Dosage: 4 GRAM, OD
     Route: 042

REACTIONS (3)
  - General physical health deterioration [Fatal]
  - No adverse event [Unknown]
  - Product use in unapproved indication [Unknown]
